FAERS Safety Report 10111595 (Version 2)
Quarter: 2014Q2

REPORT INFORMATION
  Report Type: Spontaneous
  Country: US (occurrence: US)
  Receive Date: 20140425
  Receipt Date: 20140501
  Transmission Date: 20141212
  Serious: Yes (Hospitalization, Other)
  Sender: FDA-Public Use
  Company Number: US-TEVA-477855USA

PATIENT
  Age: 55 Year
  Sex: Female

DRUGS (2)
  1. COPAXONE 40 MG [Suspect]
     Indication: MULTIPLE SCLEROSIS
     Dates: start: 20030929
  2. COPAXONE 40 MG [Suspect]
     Dates: start: 20140331

REACTIONS (8)
  - Pyrexia [Recovered/Resolved]
  - Weight decreased [Recovered/Resolved]
  - Blood electrolytes decreased [Unknown]
  - Heart rate decreased [Recovered/Resolved]
  - Cellulitis [Recovered/Resolved]
  - Thrombosis [Recovered/Resolved]
  - Gastrointestinal disorder [Unknown]
  - Dehydration [Recovered/Resolved]
